FAERS Safety Report 9703283 (Version 2)
Quarter: 2013Q4

REPORT INFORMATION
  Report Type: Report from Study
  Country: DE (occurrence: DE)
  Receive Date: 20131122
  Receipt Date: 20131206
  Transmission Date: 20140711
  Serious: Yes (Hospitalization)
  Sender: FDA-Public Use
  Company Number: DE-AMGEN-DEUCT2013081863

PATIENT
  Age: 49 Year
  Sex: Female
  Weight: 66 kg

DRUGS (3)
  1. ETANERCEPT [Suspect]
     Indication: PSORIATIC ARTHROPATHY
     Dosage: 50 MG, WEEKLY
     Route: 058
     Dates: start: 20130927, end: 20131025
  2. IBUPROFEN [Concomitant]
     Indication: RHEUMATOID ARTHRITIS
     Dosage: 800 MG, AS NEEDED
     Route: 048
  3. L-THYROXIN [Concomitant]
     Dosage: 75 UG, UNK

REACTIONS (2)
  - Akathisia [Recovered/Resolved]
  - Paraesthesia [Recovered/Resolved]
